FAERS Safety Report 25665220 (Version 1)
Quarter: 2025Q3

REPORT INFORMATION
  Report Type: Spontaneous
  Country: BR (occurrence: BR)
  Receive Date: 20250811
  Receipt Date: 20250811
  Transmission Date: 20251021
  Serious: Yes (Hospitalization)
  Sender: CHEPLAPHARM
  Company Number: BR-ROCHE-2185144

PATIENT
  Age: 42 Year
  Sex: Female
  Weight: 69.699 kg

DRUGS (37)
  1. CAPECITABINE [Suspect]
     Active Substance: CAPECITABINE
     Indication: Triple negative breast cancer
     Dosage: DATE OF MOST RECENT DOSE OF CAPECITABINE (1800 MG) PRIOR TO SAE ONSET: 06/SEP/2018? FREQUENCY TEX...
     Route: 048
     Dates: start: 20180816
  2. CAPECITABINE [Suspect]
     Active Substance: CAPECITABINE
     Indication: Triple negative breast cancer
     Route: 048
  3. PLACEBO [Suspect]
     Active Substance: PLACEBO
     Dosage: DATE OF MOST RECENT DOSE PRIOR TO SAE ONSET: 06/SEP/2018? FREQUENCY TEXT:ON DAYS 1 AND 8 OF EACH ...
     Route: 042
     Dates: start: 20180816, end: 20180906
  4. PLACEBO [Suspect]
     Active Substance: PLACEBO
     Route: 042
  5. ONDANSETRON [Concomitant]
     Active Substance: ONDANSETRON
     Dates: start: 20180816
  6. ONDANSETRON [Concomitant]
     Active Substance: ONDANSETRON
     Dates: start: 20180826, end: 20180826
  7. ONDANSETRON [Concomitant]
     Active Substance: ONDANSETRON
     Dates: start: 20180912, end: 20180920
  8. ONDANSETRON [Concomitant]
     Active Substance: ONDANSETRON
     Dates: start: 20190131, end: 20190216
  9. ONDANSETRON [Concomitant]
     Active Substance: ONDANSETRON
     Dates: start: 20190314
  10. ONDANSETRON [Concomitant]
     Active Substance: ONDANSETRON
     Dates: start: 20190404, end: 20190419
  11. ONDANSETRON [Concomitant]
     Active Substance: ONDANSETRON
     Dates: start: 20190425, end: 20190429
  12. ONDANSETRON [Concomitant]
     Active Substance: ONDANSETRON
     Dates: start: 20190516, end: 20190520
  13. BISACODYL [Concomitant]
     Active Substance: BISACODYL
     Dates: start: 20180917, end: 20180918
  14. BISACODYL [Concomitant]
     Active Substance: BISACODYL
     Dates: start: 20180927
  15. BISACODYL [Concomitant]
     Active Substance: BISACODYL
     Dates: start: 20190131, end: 20190214
  16. BISACODYL [Concomitant]
     Active Substance: BISACODYL
     Dates: start: 20190314
  17. BISACODYL [Concomitant]
     Active Substance: BISACODYL
     Dates: start: 20190425, end: 20190515
  18. BISACODYL [Concomitant]
     Active Substance: BISACODYL
     Dates: start: 20190516, end: 20190603
  19. METOCLOPRAMIDE [Concomitant]
     Active Substance: METOCLOPRAMIDE
     Dates: start: 20180911, end: 20180920
  20. METOCLOPRAMIDE [Concomitant]
     Active Substance: METOCLOPRAMIDE
     Dates: start: 20180912, end: 20181013
  21. METOCLOPRAMIDE [Concomitant]
     Active Substance: METOCLOPRAMIDE
     Dates: start: 20180926, end: 20180926
  22. DIMENHYDRINATE [Concomitant]
     Active Substance: DIMENHYDRINATE
     Dates: start: 20180826
  23. DEXAMETHASONE [Concomitant]
     Active Substance: DEXAMETHASONE
     Dates: start: 20180723, end: 20180727
  24. DEXAMETHASONE [Concomitant]
     Active Substance: DEXAMETHASONE
     Dates: start: 20180812, end: 20180912
  25. LACTULOSE [Concomitant]
     Active Substance: LACTULOSE
     Dates: start: 20180912, end: 20180913
  26. PREDNISONE [Concomitant]
     Active Substance: PREDNISONE
     Dates: start: 20180812, end: 20180812
  27. OMEPRAZOLE [Concomitant]
     Active Substance: OMEPRAZOLE
     Dates: start: 20180430, end: 20181018
  28. DIMENHYDRINATE\PYRIDOXINE HYDROCHLORIDE [Concomitant]
     Active Substance: DIMENHYDRINATE\PYRIDOXINE HYDROCHLORIDE
     Dates: start: 20190131, end: 20190216
  29. DIMENHYDRINATE\PYRIDOXINE HYDROCHLORIDE [Concomitant]
     Active Substance: DIMENHYDRINATE\PYRIDOXINE HYDROCHLORIDE
     Dates: start: 20190314
  30. DIMENHYDRINATE\PYRIDOXINE HYDROCHLORIDE [Concomitant]
     Active Substance: DIMENHYDRINATE\PYRIDOXINE HYDROCHLORIDE
     Dates: start: 20190404, end: 20190419
  31. DIMENHYDRINATE\PYRIDOXINE HYDROCHLORIDE [Concomitant]
     Active Substance: DIMENHYDRINATE\PYRIDOXINE HYDROCHLORIDE
     Dates: start: 20190425, end: 20190510
  32. DIMENHYDRINATE\PYRIDOXINE HYDROCHLORIDE [Concomitant]
     Active Substance: DIMENHYDRINATE\PYRIDOXINE HYDROCHLORIDE
     Dates: start: 20190516, end: 20190520
  33. ORPHENADRINE [Concomitant]
     Active Substance: ORPHENADRINE
     Dates: start: 20191117, end: 20191117
  34. RANITIDINE [Concomitant]
     Active Substance: RANITIDINE
     Dates: start: 20190908, end: 20190913
  35. CAFFEINE\DIPYRONE\ORPHENADRINE [Concomitant]
     Active Substance: CAFFEINE\DIPYRONE\ORPHENADRINE
     Dates: start: 20191117, end: 20191117
  36. DEPAKENE [Concomitant]
     Active Substance: VALPROIC ACID
     Dates: start: 20190919
  37. DIPYRONE [Concomitant]
     Active Substance: DIPYRONE
     Dates: start: 20200423, end: 20200423

REACTIONS (2)
  - Vomiting [Recovered/Resolved]
  - Generalised tonic-clonic seizure [Recovered/Resolved]

NARRATIVE: CASE EVENT DATE: 20180907
